FAERS Safety Report 8522090-7 (Version None)
Quarter: 2012Q3

REPORT INFORMATION
  Report Type: 
  Country: None (occurrence: None)
  Receive Date: 20120719
  Receipt Date: 20120717
  Transmission Date: 20120928
  Serious: Yes (Other)
  Sender: FDA-Public Use
  Company Number: US-PFIZER INC-2012134401

PATIENT
  Sex: Female

DRUGS (4)
  1. REMICADE [Concomitant]
     Indication: ILL-DEFINED DISORDER
     Dosage: UNK
  2. METHOTREXATE [Concomitant]
     Dosage: 1 MG, WEEKLY
  3. CELEBREX [Suspect]
     Indication: ARTHRITIS
     Dosage: 200 MG, 1X/DAY
     Route: 048
  4. ACCUPRIL [Suspect]
     Indication: HYPERTENSION
     Dosage: 20 MG, 1X/DAY
     Route: 048

REACTIONS (2)
  - SCAR [None]
  - ARTHRITIS [None]
